FAERS Safety Report 10062697 (Version 1)
Quarter: 2014Q2

REPORT INFORMATION
  Report Type: Spontaneous
  Country: US (occurrence: US)
  Receive Date: 20140407
  Receipt Date: 20140407
  Transmission Date: 20141212
  Serious: Yes (Death)
  Sender: FDA-Public Use
  Company Number: US-GLAXOSMITHKLINE-A1067065A

PATIENT
  Age: 68 Year
  Sex: Male

DRUGS (2)
  1. ARIXTRA [Suspect]
     Indication: PRODUCT USED FOR UNKNOWN INDICATION
     Route: 065
  2. NO CONCURRENT MEDICATION [Concomitant]

REACTIONS (1)
  - Death [Fatal]
